FAERS Safety Report 21998792 (Version 1)
Quarter: 2023Q1

REPORT INFORMATION
  Report Type: Report from Study
  Country: US (occurrence: US)
  Receive Date: 20230216
  Receipt Date: 20230216
  Transmission Date: 20230417
  Serious: Yes (Other)
  Sender: FDA-Public Use
  Company Number: US-ARGENX-2023-ARGX-US000456

PATIENT

DRUGS (1)
  1. EFGARTIGIMOD ALFA-FCAB [Suspect]
     Active Substance: EFGARTIGIMOD ALFA-FCAB
     Indication: Myasthenia gravis
     Route: 042

REACTIONS (4)
  - Respiratory symptom [Unknown]
  - Cough [Unknown]
  - Ear pain [Unknown]
  - Sinus pain [Unknown]

NARRATIVE: CASE EVENT DATE: 20230124
